FAERS Safety Report 8598200-2 (Version None)
Quarter: 2012Q3

REPORT INFORMATION
  Report Type: 
  Country: None (occurrence: None)
  Receive Date: 20120816
  Receipt Date: 20120807
  Transmission Date: 20120928
  Serious: Yes (Other)
  Sender: FDA-Public Use
  Company Number: IT-CELGENEUS-083-21880-12080875

PATIENT
  Age: 66 Year
  Sex: Male
  Weight: 87 kg

DRUGS (8)
  1. REVLIMID [Suspect]
     Dosage: 12.5 MILLIGRAM
     Route: 048
     Dates: start: 20110221, end: 20110306
  2. DEXAMETHASONE [Suspect]
     Dosage: 2.6667 MILLIGRAM
     Route: 048
     Dates: start: 20110307, end: 20110405
  3. REVLIMID [Suspect]
     Dosage: 15 MILLIGRAM
     Route: 048
     Dates: start: 20111029, end: 20111107
  4. REVLIMID [Suspect]
     Indication: MULTIPLE MYELOMA
     Dosage: 25 MILLIGRAM
     Route: 048
     Dates: start: 20110209, end: 20110215
  5. REVLIMID [Suspect]
     Dosage: 15 MILLIGRAM
     Route: 048
     Dates: start: 20110318, end: 20110407
  6. DEXAMETHASONE [Suspect]
     Indication: MULTIPLE MYELOMA
     Dosage: 5.3333 MILLIGRAM
     Route: 048
     Dates: start: 20110209, end: 20110221
  7. HEPARIN [Concomitant]
     Indication: THROMBOSIS PROPHYLAXIS
     Route: 065
  8. DEXAMETHASONE [Suspect]
     Dosage: 2.6667 MILLIGRAM
     Route: 048
     Dates: start: 20110907, end: 20111006

REACTIONS (1)
  - BLADDER CANCER [None]
